FAERS Safety Report 5775818-3 (Version None)
Quarter: 2008Q2

REPORT INFORMATION
  Report Type: 
  Country: None (occurrence: None)
  Receive Date: 20080617
  Receipt Date: 20080610
  Transmission Date: 20081010
  Serious: Yes (Other)
  Sender: FDA-Public Use
  Company Number: US-BAYER-200824946NA

PATIENT
  Age: 80 Year
  Sex: Male
  Weight: 69 kg

DRUGS (5)
  1. ULTRAVIST (PHARMACY BULK) [Suspect]
     Indication: COMPUTERISED TOMOGRAM ABDOMEN
     Dosage: TOTAL DAILY DOSE: 125 ML  UNIT DOSE: 500 ML
     Route: 042
     Dates: start: 20080603, end: 20080603
  2. CONTRAST MEDIA [Concomitant]
     Indication: COMPUTERISED TOMOGRAM ABDOMEN
     Route: 048
     Dates: start: 20080603, end: 20080603
  3. ASPIRIN [Concomitant]
  4. CIPRO [Concomitant]
  5. LISINOPRIL [Concomitant]

REACTIONS (1)
  - SWOLLEN TONGUE [None]
